FAERS Safety Report 12402651 (Version 1)
Quarter: 2016Q2

REPORT INFORMATION
  Report Type: Spontaneous
  Country: US (occurrence: US)
  Receive Date: 20160525
  Receipt Date: 20160525
  Transmission Date: 20160815
  Serious: No
  Sender: FDA-Public Use
  Company Number: US-TEVA-615308USA

PATIENT
  Age: 79 Year
  Sex: Male

DRUGS (2)
  1. LOW DOSE ASPIRIN [Concomitant]
     Active Substance: ASPIRIN
     Indication: CORONARY ARTERIAL STENT INSERTION
  2. CLOPIDOGREL [Suspect]
     Active Substance: CLOPIDOGREL BISULFATE
     Indication: CORONARY ARTERIAL STENT INSERTION
     Route: 065
     Dates: start: 2004

REACTIONS (2)
  - Spinal column stenosis [Unknown]
  - Inflammation [Unknown]
